FAERS Safety Report 14033474 (Version 1)
Quarter: 2017Q4

REPORT INFORMATION
  Report Type: Spontaneous
  Country: TR (occurrence: TR)
  Receive Date: 20171003
  Receipt Date: 20171003
  Transmission Date: 20180321
  Serious: Yes (Hospitalization)
  Sender: FDA-Public Use
  Company Number: PHHY2017TR142023

PATIENT
  Age: 23 Year
  Sex: Female

DRUGS (1)
  1. METHOTREXATE. [Suspect]
     Active Substance: METHOTREXATE
     Indication: ECTOPIC PREGNANCY
     Route: 012

REACTIONS (4)
  - Maternal exposure during pregnancy [Unknown]
  - Hypovolaemia [Unknown]
  - Tachycardia [Unknown]
  - Vaginal haemorrhage [Recovering/Resolving]
